FAERS Safety Report 9861514 (Version 3)
Quarter: 2014Q3

REPORT INFORMATION
  Report Type: Report from Study
  Country: US (occurrence: US)
  Receive Date: 20140203
  Receipt Date: 20140721
  Transmission Date: 20150326
  Serious: Yes (Hospitalization, Other)
  Sender: FDA-Public Use
  Company Number: US-BIOGENIDEC-2005BI010894

PATIENT
  Sex: Female
  Weight: 56 kg

DRUGS (23)
  1. LIORESAL [Concomitant]
     Active Substance: BACLOFEN
     Route: 048
  2. LASIX [Concomitant]
     Active Substance: FUROSEMIDE
     Route: 048
  3. SUDAFED [Concomitant]
     Active Substance: PSEUDOEPHEDRINE HYDROCHLORIDE
  4. AVONEX [Suspect]
     Active Substance: INTERFERON BETA-1A
     Indication: MULTIPLE SCLEROSIS
     Route: 030
     Dates: start: 200501
  5. CHERATUSSIN [Concomitant]
  6. CLARITIN [Concomitant]
     Active Substance: LORATADINE
     Route: 048
  7. DESYREL [Concomitant]
     Active Substance: TRAZODONE HYDROCHLORIDE
     Route: 048
  8. VITAMIN B12 [Concomitant]
     Active Substance: CYANOCOBALAMIN
     Route: 048
  9. CARDIZEM [Concomitant]
     Active Substance: DILTIAZEM HYDROCHLORIDE
     Route: 048
  10. QVAR [Concomitant]
     Active Substance: BECLOMETHASONE DIPROPIONATE
  11. NEURONTIN [Concomitant]
     Active Substance: GABAPENTIN
     Route: 048
  12. CYTOTEC [Concomitant]
     Active Substance: MISOPROSTOL
     Route: 048
  13. IMURAN [Concomitant]
     Active Substance: AZATHIOPRINE
     Route: 048
  14. NEXIUM [Concomitant]
     Active Substance: ESOMEPRAZOLE MAGNESIUM
     Route: 048
  15. REGLAN [Concomitant]
     Active Substance: METOCLOPRAMIDE HYDROCHLORIDE
     Route: 048
  16. AVONEX [Suspect]
     Active Substance: INTERFERON BETA-1A
     Indication: MULTIPLE SCLEROSIS
     Route: 030
     Dates: start: 1996, end: 200501
  17. ESTRACE [Concomitant]
     Active Substance: ESTRADIOL
     Route: 048
  18. DIFLUCAN [Concomitant]
     Active Substance: FLUCONAZOLE
  19. NORCO [Concomitant]
     Active Substance: ACETAMINOPHEN\HYDROCODONE BITARTRATE
  20. IBUPROFEN. [Concomitant]
     Active Substance: IBUPROFEN
     Route: 048
  21. COMBIVENT [Concomitant]
     Active Substance: ALBUTEROL SULFATE\IPRATROPIUM BROMIDE
  22. K-DUR [Concomitant]
     Active Substance: POTASSIUM CHLORIDE
     Route: 048
  23. PRILOSEC [Concomitant]
     Active Substance: OMEPRAZOLE MAGNESIUM
     Route: 048

REACTIONS (31)
  - Thrombosis [Recovered/Resolved]
  - Urinary retention [Not Recovered/Not Resolved]
  - Alveolitis allergic [Not Recovered/Not Resolved]
  - Vitamin D deficiency [Not Recovered/Not Resolved]
  - Back pain [Unknown]
  - Fall [Recovered/Resolved]
  - Anxiety [Unknown]
  - Convulsion [Recovered/Resolved]
  - Haemorrhagic diathesis [Unknown]
  - Neck pain [Unknown]
  - Insomnia [Unknown]
  - Increased tendency to bruise [Unknown]
  - Nervousness [Unknown]
  - Hypoaesthesia [Not Recovered/Not Resolved]
  - Memory impairment [Unknown]
  - Cardiac arrest [Recovered/Resolved]
  - Generalised tonic-clonic seizure [Recovered/Resolved]
  - Cough [Unknown]
  - Diplopia [Unknown]
  - Photophobia [Unknown]
  - Paraesthesia [Not Recovered/Not Resolved]
  - Multiple sclerosis relapse [Recovered/Resolved with Sequelae]
  - Breath sounds absent [Recovered/Resolved]
  - Coordination abnormal [Not Recovered/Not Resolved]
  - Acquired claw toe [Unknown]
  - Carpal tunnel decompression [Unknown]
  - Dyspnoea [Unknown]
  - Asthenia [Recovered/Resolved]
  - Urosepsis [Unknown]
  - Aphasia [Recovered/Resolved]
  - Arthralgia [Unknown]

NARRATIVE: CASE EVENT DATE: 2001
